FAERS Safety Report 20628234 (Version 2)
Quarter: 2024Q3

REPORT INFORMATION
  Report Type: Report from Study
  Country: AR (occurrence: AR)
  Receive Date: 20220323
  Receipt Date: 20240821
  Transmission Date: 20241017
  Serious: Yes (Other)
  Sender: ROCHE
  Company Number: AR-002147023-PHHY2018AR108928

PATIENT
  Age: 68 Year
  Sex: Female

DRUGS (11)
  1. XOLAIR [Suspect]
     Active Substance: OMALIZUMAB
     Indication: Asthma
     Dosage: 450 MG, QMO (300 MG AND 150 (UNITS NOT PROVIDED) THE NEXT WEEK)
     Route: 058
     Dates: start: 20130101
  2. XOLAIR [Suspect]
     Active Substance: OMALIZUMAB
     Dosage: 300MG (2 AMPOULES IN A WEEK, IN A SAME APPLICATION DOSE)
     Route: 065
     Dates: start: 20180924
  3. XOLAIR [Suspect]
     Active Substance: OMALIZUMAB
     Dosage: 450 MG, QMO
     Route: 065
     Dates: start: 20181001
  4. XOLAIR [Suspect]
     Active Substance: OMALIZUMAB
     Dosage: 450 MG, QMO
     Route: 065
  5. XOLAIR [Suspect]
     Active Substance: OMALIZUMAB
     Dosage: 150 MG, QW
     Route: 065
  6. XOLAIR [Suspect]
     Active Substance: OMALIZUMAB
     Dosage: 300 MG
     Route: 065
  7. XOLAIR [Suspect]
     Active Substance: OMALIZUMAB
     Dosage: 2 XOLAIR SYRINGES ONE DAY, AND WITH A ONE-WEEK DIFFERENCE SHE APPLIES ONE MORE SYRINGE., UNKNOWN
     Route: 065
     Dates: start: 2014
  8. MONTELUKAST [Concomitant]
     Active Substance: MONTELUKAST SODIUM
  9. SERETIDE [Concomitant]
     Active Substance: FLUTICASONE PROPIONATE\SALMETEROL XINAFOATE
  10. ENALAPRIL [Concomitant]
     Active Substance: ENALAPRIL
  11. ATORVASTATIN [Concomitant]
     Active Substance: ATORVASTATIN

REACTIONS (12)
  - Asthmatic crisis [Recovering/Resolving]
  - Dyspnoea [Not Recovered/Not Resolved]
  - Bronchospasm [Recovered/Resolved]
  - Ear infection [Unknown]
  - Sensitivity to weather change [Unknown]
  - Malaise [Not Recovered/Not Resolved]
  - Gait disturbance [Not Recovered/Not Resolved]
  - Injection site pain [Not Recovered/Not Resolved]
  - Fatigue [Not Recovered/Not Resolved]
  - Asthma [Unknown]
  - Product dose omission issue [Unknown]
  - Off label use [Unknown]

NARRATIVE: CASE EVENT DATE: 20180824
